FAERS Safety Report 5793955-4 (Version None)
Quarter: 2008Q2

REPORT INFORMATION
  Report Type: 
  Country: None (occurrence: None)
  Receive Date: 20080601
  Receipt Date: 20080122
  Transmission Date: 20081010
  Serious: No
  Sender: FDA-Public Use
  Company Number: US200801004854

PATIENT
  Age: 78 Year
  Sex: Female
  Weight: 78 kg

DRUGS (8)
  1. BYETTA [Suspect]
     Indication: TYPE 2 DIABETES MELLITUS
     Dosage: 5 UG, 2/D, SUBCUTANEOUS
     Route: 058
     Dates: start: 20071001
  2. LOTREL [Concomitant]
  3. SPIRONOLACTONE [Concomitant]
  4. TOPROL-XL [Concomitant]
  5. NIASPAN [Concomitant]
  6. BABY ASPIRIN (ACETYLSALCYLIC ACID) [Concomitant]
  7. VYTORIN [Concomitant]
  8. VITAMIN TAB [Concomitant]

REACTIONS (3)
  - NAUSEA [None]
  - VITREOUS FLOATERS [None]
  - VOMITING [None]
